FAERS Safety Report 8404180-2 (Version None)
Quarter: 2012Q2

REPORT INFORMATION
  Report Type: 
  Country: None (occurrence: None)
  Receive Date: 20120601
  Receipt Date: 20111012
  Transmission Date: 20120825
  Serious: No
  Sender: FDA-Public Use
  Company Number: US-NOVEN-11US003425

PATIENT
  Sex: Female

DRUGS (5)
  1. DAYTRANA [Suspect]
     Indication: ATTENTION DEFICIT/HYPERACTIVITY DISORDER
     Dosage: 15 MG, QD
     Route: 062
     Dates: start: 20111001
  2. FLOVENT [Concomitant]
     Indication: ASTHMA
     Dosage: UNK
  3. DAYTRANA [Suspect]
     Dosage: 10 MG, QD
     Route: 062
     Dates: start: 20110901, end: 20111001
  4. PREVACID [Concomitant]
     Indication: GASTROOESOPHAGEAL REFLUX DISEASE
  5. SINGULAIR [Concomitant]
     Indication: ASTHMA
     Dosage: UNK

REACTIONS (1)
  - PRURITUS [None]
